FAERS Safety Report 24750779 (Version 2)
Quarter: 2025Q3

REPORT INFORMATION
  Report Type: Report from Study
  Country: US (occurrence: US)
  Receive Date: 20241218
  Receipt Date: 20250810
  Transmission Date: 20251021
  Serious: Yes (Other)
  Sender: ALEXION PHARMACEUTICALS
  Company Number: US-ALXN-202412USA010922US

PATIENT
  Sex: Female

DRUGS (1)
  1. STRENSIQ [Suspect]
     Active Substance: ASFOTASE ALFA
     Route: 065

REACTIONS (7)
  - Accident [Recovering/Resolving]
  - Fall [Recovering/Resolving]
  - Upper limb fracture [Recovering/Resolving]
  - Wrist fracture [Recovering/Resolving]
  - Osteoporosis [Recovering/Resolving]
  - Joint dislocation [Recovering/Resolving]
  - Cerebral palsy [Recovering/Resolving]
